FAERS Safety Report 21575986 (Version 5)
Quarter: 2023Q1

REPORT INFORMATION
  Report Type: Spontaneous
  Country: US (occurrence: US)
  Receive Date: 20221110
  Receipt Date: 20230207
  Transmission Date: 20230418
  Serious: No
  Sender: FDA-Public Use
  Company Number: US-BIOGEN-2022BI01167014

PATIENT
  Sex: Male

DRUGS (3)
  1. TYSABRI [Suspect]
     Active Substance: NATALIZUMAB
     Indication: Multiple sclerosis
     Route: 050
     Dates: start: 20210611
  2. TYSABRI [Suspect]
     Active Substance: NATALIZUMAB
     Route: 050
  3. KETAMINE [Concomitant]
     Active Substance: KETAMINE
     Route: 050

REACTIONS (8)
  - Prescribed underdose [Not Recovered/Not Resolved]
  - Inappropriate schedule of product administration [Unknown]
  - Product dose omission issue [Unknown]
  - Illness [Not Recovered/Not Resolved]
  - Arthritis reactive [Not Recovered/Not Resolved]
  - Visual impairment [Not Recovered/Not Resolved]
  - Rebound effect [Unknown]
  - Uveitis [Unknown]

NARRATIVE: CASE EVENT DATE: 20220101
